FAERS Safety Report 6755374-3 (Version None)
Quarter: 2010Q2

REPORT INFORMATION
  Report Type: 
  Country: None (occurrence: None)
  Receive Date: 20100604
  Receipt Date: 20100525
  Transmission Date: 20101027
  Serious: Yes (Other)
  Sender: FDA-Public Use
  Company Number: US-PFIZER INC-2007025352

PATIENT
  Sex: Female
  Weight: 70.295 kg

DRUGS (25)
  1. NEURONTIN [Suspect]
     Indication: NEURALGIA
     Dosage: 300 MG, 3X/DAY
     Route: 048
     Dates: start: 19950101
  2. NEURONTIN [Suspect]
     Indication: INTERVERTEBRAL DISC PROTRUSION
     Dosage: 300 MG, 3X/DAY
     Dates: start: 19950101
  3. NEURONTIN [Suspect]
     Indication: SCIATICA
  4. NEURONTIN [Suspect]
     Indication: SPINAL COLUMN STENOSIS
  5. NEURONTIN [Suspect]
     Indication: SPINAL OSTEOARTHRITIS
  6. NEURONTIN [Suspect]
  7. NEURONTIN [Suspect]
     Indication: BACK DISORDER
  8. NEURONTIN [Suspect]
     Indication: FIBROMYALGIA
  9. PROCARDIA [Suspect]
     Indication: HYPERTENSION
     Dosage: 60 MG, DAILY
     Route: 048
  10. LYRICA [Suspect]
     Indication: NERVE INJURY
     Dosage: 100 MG, 3X/DAY
     Route: 048
     Dates: start: 20090101, end: 20100101
  11. LYRICA [Suspect]
     Indication: FIBROMYALGIA
  12. LYRICA [Suspect]
     Indication: NEURALGIA
  13. VYTORIN [Concomitant]
     Dosage: UNK
  14. PLAVIX [Concomitant]
  15. TOPROL-XL [Concomitant]
  16. ASPIRIN [Concomitant]
  17. QUININE [Concomitant]
  18. ALPRAZOLAM [Concomitant]
  19. FOSAMAX [Concomitant]
  20. HYDROCODONE [Concomitant]
     Indication: PAIN
     Dosage: EVERY 6 HOURS
  21. CARISOPRODOL [Concomitant]
     Dosage: DAILY
  22. ACETYLSALICYLIC ACID [Concomitant]
  23. TOPROL-XL [Concomitant]
     Indication: HYPERTENSION
     Dosage: UNK
  24. XANAX [Concomitant]
     Dosage: 0.5 MG, UNK
  25. VALSARTAN [Concomitant]
     Indication: HYPERTENSION
     Dosage: UNK

REACTIONS (16)
  - ALOPECIA [None]
  - ARTERIAL OCCLUSIVE DISEASE [None]
  - BACK PAIN [None]
  - DRUG INEFFECTIVE [None]
  - FALL [None]
  - FEELING ABNORMAL [None]
  - FIBROMYALGIA [None]
  - GAIT DISTURBANCE [None]
  - HEADACHE [None]
  - IMMUNE SYSTEM DISORDER [None]
  - MUSCLE FATIGUE [None]
  - NEURALGIA [None]
  - OSTEOPOROSIS [None]
  - PAIN [None]
  - PARAESTHESIA [None]
  - SPINAL COLUMN INJURY [None]
